FAERS Safety Report 24972453 (Version 2)
Quarter: 2025Q3

REPORT INFORMATION
  Report Type: Report from Study
  Country: US (occurrence: None)
  Receive Date: 20250215
  Receipt Date: 20250816
  Transmission Date: 20251020
  Serious: Yes (Other)
  Sender: ALEXION PHARMACEUTICALS
  Company Number: US-AstraZeneca-2015SE34198

PATIENT
  Age: 62 Year
  Sex: Female
  Weight: 72.575 kg

DRUGS (2)
  1. SYMBICORT [Suspect]
     Active Substance: BUDESONIDE\FORMOTEROL FUMARATE DIHYDRATE
     Indication: Viral infection
  2. NEXIUM [Suspect]
     Active Substance: ESOMEPRAZOLE MAGNESIUM

REACTIONS (8)
  - Pneumonia [Recovered/Resolved]
  - Influenza [Unknown]
  - Lung disorder [Not Recovered/Not Resolved]
  - Pneumonia [Unknown]
  - Loss of personal independence in daily activities [Unknown]
  - Choking [Unknown]
  - Hypoacusis [Unknown]
  - Product use in unapproved indication [Unknown]

NARRATIVE: CASE EVENT DATE: 20140101
